FAERS Safety Report 24392322 (Version 2)
Quarter: 2024Q4

REPORT INFORMATION
  Report Type: Spontaneous
  Country: CN (occurrence: CN)
  Receive Date: 20241003
  Receipt Date: 20241015
  Transmission Date: 20250114
  Serious: Yes (Hospitalization, Other)
  Sender: NOVARTIS
  Company Number: CN-002147023-NVSC2024CN194635

PATIENT
  Age: 66 Year
  Sex: Male
  Weight: 64 kg

DRUGS (2)
  1. SACUBITRIL\VALSARTAN [Suspect]
     Active Substance: SACUBITRIL\VALSARTAN
     Indication: Cardiac stress test abnormal
     Dosage: 50 MG, QD
     Route: 048
     Dates: start: 20240825, end: 20240827
  2. SACUBITRIL\VALSARTAN [Suspect]
     Active Substance: SACUBITRIL\VALSARTAN
     Dosage: UNK
     Route: 065
     Dates: start: 20240927

REACTIONS (7)
  - Palpitations [Recovering/Resolving]
  - Chest discomfort [Unknown]
  - Hypotension [Recovering/Resolving]
  - Atrial fibrillation [Unknown]
  - Night sweats [Recovering/Resolving]
  - Dizziness [Recovering/Resolving]
  - Asthenia [Unknown]

NARRATIVE: CASE EVENT DATE: 20240927
